FAERS Safety Report 6195418-3 (Version None)
Quarter: 2009Q2

REPORT INFORMATION
  Report Type: 
  Country: None (occurrence: None)
  Receive Date: 20090519
  Receipt Date: 20090511
  Transmission Date: 20091009
  Serious: Yes (Other)
  Sender: FDA-Public Use
  Company Number: GB-PURDUE-GBR-2009-0005126

PATIENT

DRUGS (10)
  1. MORPHINE SULFATE [Suspect]
     Indication: BACK PAIN
     Dosage: 100 MG, DAILY
     Route: 048
  2. MORPHINE SULFATE [Suspect]
     Dosage: 14 MG, DAILY
     Route: 037
  3. MORPHINE SULFATE [Suspect]
     Dosage: 5.5 MG, DAILY
     Route: 037
  4. MORPHINE SULFATE [Suspect]
     Dosage: 2 MG, DAILY
     Route: 037
     Dates: start: 20010701
  5. AMITRIPTLINE HYDROCHLORIDE TAB [Concomitant]
     Route: 065
  6. CARBAMAZEPINE [Concomitant]
     Route: 065
  7. DIAMORPHINE [Concomitant]
     Dosage: 20 MG, DAILY
     Route: 008
  8. GABAPENTIN [Concomitant]
     Route: 065
  9. NORTRIPTYLINE HCL [Concomitant]
     Route: 048
  10. VENLAFAXINE HCL [Concomitant]
     Dosage: UNK, UNK
     Route: 065

REACTIONS (7)
  - ANGIOMYOLIPOMA [None]
  - CHOLESTASIS OF PREGNANCY [None]
  - DEEP VEIN THROMBOSIS [None]
  - FLANK PAIN [None]
  - PARAESTHESIA [None]
  - URINARY RETENTION [None]
  - WITHDRAWAL SYNDROME [None]
